FAERS Safety Report 5178244-3 (Version None)
Quarter: 2006Q4

REPORT INFORMATION
  Report Type: 
  Country: None (occurrence: None)
  Receive Date: 20061218
  Receipt Date: 20061011
  Transmission Date: 20070319
  Serious: No
  Sender: FDA-Public Use
  Company Number: US-AMGEN-KDL191498

PATIENT
  Sex: Female

DRUGS (6)
  1. ENBREL [Suspect]
     Indication: PSORIASIS
     Route: 058
     Dates: start: 20060615
  2. PROTONIX [Concomitant]
  3. TOPROL-XL [Concomitant]
  4. WELLBUTRIN [Concomitant]
  5. SOMA [Concomitant]
  6. VICODIN [Concomitant]

REACTIONS (2)
  - BLEPHAROSPASM [None]
  - MIGRAINE [None]
